FAERS Safety Report 4269705-X (Version None)
Quarter: 2004Q1

REPORT INFORMATION
  Report Type: 
  Country: None (occurrence: None)
  Receive Date: 20040112
  Receipt Date: 20031231
  Transmission Date: 20041129
  Serious: No
  Sender: FDA-Public Use
  Company Number: 04H-163-0246291-00

PATIENT
  Age: 11 Year
  Sex: Female
  Weight: 46 kg

DRUGS (8)
  1. HALOTHANE [Suspect]
     Indication: ANAESTHESIA
     Dosage: 0.8%, INHALATION
     Route: 045
  2. ATENOLOL [Concomitant]
  3. MIDAZOLAM HCL [Concomitant]
  4. OXYGEN [Concomitant]
  5. FENTANYL [Concomitant]
  6. PROPOFOL [Concomitant]
  7. ROCURONIUM [Concomitant]
  8. NITROUS OXIDE [Concomitant]

REACTIONS (3)
  - TORSADE DE POINTES [None]
  - VENTRICULAR EXTRASYSTOLES [None]
  - VENTRICULAR TACHYCARDIA [None]
